FAERS Safety Report 10664248 (Version 1)
Quarter: 2014Q4

REPORT INFORMATION
  Report Type: Spontaneous
  Country: US (occurrence: None)
  Receive Date: 20141205
  Receipt Date: 20141205
  Transmission Date: 20150529
  Serious: No
  Sender: FDA-Public Use
  Company Number: 163-POMAL-14074965

PATIENT
  Age: 58 Year
  Sex: Male

DRUGS (8)
  1. PROBIOTIC (BIFIDOBACTERIUM LACTIS) [Concomitant]
  2. MULTIVITAMINS (MULTIVITAMINS) [Concomitant]
     Active Substance: VITAMINS
  3. DEXAMETHASONE (DEXAMETHASONE) [Concomitant]
     Active Substance: DEXAMETHASONE
  4. MORPHINE SULFATE (MORPHINE SULFATE) [Concomitant]
  5. POMALYST [Suspect]
     Active Substance: POMALIDOMIDE
     Indication: PLASMA CELL MYELOMA
     Dosage: 21 IN 21D
     Route: 048
     Dates: start: 20140702, end: 20140708
  6. MAGNESIUM (MAGNESIUIM [Concomitant]
  7. VITAMIN D (ERGOCALCIFEROL) [Concomitant]
     Active Substance: ERGOCALCIFEROL
  8. GABAPENTIN (GABAPENTIN) [Concomitant]
     Active Substance: GABAPENTIN

REACTIONS (3)
  - Tremor [None]
  - Rash [None]
  - Gait disturbance [None]

NARRATIVE: CASE EVENT DATE: 2014
